FAERS Safety Report 6883341-8 (Version None)
Quarter: 2010Q3

REPORT INFORMATION
  Report Type: 
  Country: None (occurrence: None)
  Receive Date: 20100727
  Receipt Date: 20071205
  Transmission Date: 20110219
  Serious: Yes (Hospitalization, Disabling, Other)
  Sender: FDA-Public Use
  Company Number: US-PFIZER INC-2007005094

PATIENT
  Sex: Female
  Weight: 86.2 kg

DRUGS (4)
  1. CELEBREX [Suspect]
     Dates: start: 20041101, end: 20041130
  2. BEXTRA [Suspect]
     Indication: PAIN
     Dates: start: 20041001, end: 20041031
  3. VIOXX [Suspect]
     Indication: PAIN
     Dates: start: 20020201, end: 20040930
  4. ATENOLOL [Concomitant]
     Indication: HYPERTENSION
     Dates: start: 19980901

REACTIONS (3)
  - CORONARY ARTERY DISEASE [None]
  - HEADACHE [None]
  - MYOCARDIAL INFARCTION [None]
